FAERS Safety Report 5702339-6 (Version None)
Quarter: 2008Q2

REPORT INFORMATION
  Report Type: 
  Country: None (occurrence: None)
  Receive Date: 20080411
  Receipt Date: 20080331
  Transmission Date: 20081010
  Serious: Yes (Hospitalization)
  Sender: FDA-Public Use
  Company Number: US-AMGEN-QUU272303

PATIENT
  Sex: Male

DRUGS (3)
  1. NEUPOGEN [Suspect]
     Indication: CHEMOTHERAPY
     Dates: start: 20080326, end: 20080327
  2. GEMZAR [Concomitant]
     Dates: start: 20080325
  3. CAPECITABINE [Concomitant]
     Dates: start: 20080325

REACTIONS (1)
  - SEPTIC SHOCK [None]
